FAERS Safety Report 8364463-1 (Version None)
Quarter: 2012Q2

REPORT INFORMATION
  Report Type: 
  Country: None (occurrence: None)
  Receive Date: 20120514
  Receipt Date: 20120425
  Transmission Date: 20120825
  Serious: Yes (Other)
  Sender: FDA-Public Use
  Company Number: JPI-P-021106

PATIENT

DRUGS (1)
  1. XYREM [Suspect]
     Indication: NARCOLEPSY
     Dosage: ORAL
     Route: 048
     Dates: start: 20090929

REACTIONS (7)
  - ABDOMINAL PAIN [None]
  - SOMNOLENCE [None]
  - ABDOMINAL DISTENSION [None]
  - VICTIM OF SEXUAL ABUSE [None]
  - AMNESIA [None]
  - BALANCE DISORDER [None]
  - INITIAL INSOMNIA [None]
